FAERS Safety Report 20314826 (Version 1)
Quarter: 2022Q1

REPORT INFORMATION
  Report Type: Spontaneous
  Country: US (occurrence: None)
  Receive Date: 20220110
  Receipt Date: 20220110
  Transmission Date: 20220423
  Serious: No
  Sender: FDA-Public Use
  Company Number: US-ROCHE-2881986

PATIENT
  Sex: Female

DRUGS (4)
  1. RITUXAN [Suspect]
     Active Substance: RITUXIMAB
     Indication: Rheumatoid arthritis
     Dosage: ONGOING: YES; 2 INFUSIONS SEPARATED BY 2 WEEKS EVERY 5 MONTHS
     Route: 041
  2. RITUXAN [Suspect]
     Active Substance: RITUXIMAB
     Indication: Sjogren^s syndrome
  3. RITUXAN [Suspect]
     Active Substance: RITUXIMAB
     Indication: Fibromyalgia
  4. RITUXAN [Suspect]
     Active Substance: RITUXIMAB
     Indication: Multiple sclerosis

REACTIONS (5)
  - Condition aggravated [Not Recovered/Not Resolved]
  - Neck pain [Not Recovered/Not Resolved]
  - Liver function test abnormal [Not Recovered/Not Resolved]
  - Fatigue [Not Recovered/Not Resolved]
  - Swelling [Unknown]

NARRATIVE: CASE EVENT DATE: 20201001
